FAERS Safety Report 9467023 (Version 1)
Quarter: 2013Q3

REPORT INFORMATION
  Report Type: Spontaneous
  Country: US (occurrence: US)
  Receive Date: 20130820
  Receipt Date: 20130820
  Transmission Date: 20140515
  Serious: Yes (Death)
  Sender: FDA-Public Use
  Company Number: US-GLAXOSMITHKLINE-A1038100A

PATIENT
  Age: 64 Year
  Sex: Female

DRUGS (10)
  1. VOTRIENT [Suspect]
     Indication: SOFT TISSUE CANCER
     Dosage: 800MG PER DAY
     Route: 048
     Dates: start: 20130719
  2. ATENOLOL [Concomitant]
  3. COMPAZINE [Concomitant]
  4. GABAPENTIN [Concomitant]
  5. LASIX [Concomitant]
  6. MOTRIN [Concomitant]
  7. MS CONTIN [Concomitant]
  8. MULTIVITAMIN [Concomitant]
  9. OXYCODONE [Concomitant]
  10. ZOFRAN [Concomitant]

REACTIONS (1)
  - Death [Fatal]
